FAERS Safety Report 21002495 (Version 1)
Quarter: 2022Q2

REPORT INFORMATION
  Report Type: Spontaneous
  Country: US (occurrence: None)
  Receive Date: 20220623
  Receipt Date: 20220623
  Transmission Date: 20220721
  Serious: Yes (Hospitalization)
  Sender: FDA-Public Use
  Company Number: None

PATIENT
  Age: 63 Year
  Sex: Male
  Weight: 94.3 kg

DRUGS (11)
  1. TEMOZOLOMIDE [Suspect]
     Active Substance: TEMOZOLOMIDE
     Indication: Brain neoplasm malignant
     Dosage: FREQUENCY : DAILY;?
     Route: 048
  2. ACETAMINOPHEN [Concomitant]
  3. CBD OIL [Concomitant]
  4. DEXAMETHASONE [Concomitant]
  5. HYDROCHLOROTHIAZIDE [Concomitant]
  6. KEPPRA [Concomitant]
     Active Substance: LEVETIRACETAM
  7. LEVETIRACETAM [Concomitant]
  8. LEVOTHYROXINE SODIUM [Concomitant]
  9. VITAMINS [Concomitant]
     Active Substance: VITAMINS
  10. OXYCODEONE HCI [Concomitant]
  11. TELMISARTAN [Concomitant]
     Active Substance: TELMISARTAN

REACTIONS (2)
  - Respiratory disorder [None]
  - Therapy interrupted [None]

NARRATIVE: CASE EVENT DATE: 20220622
